FAERS Safety Report 18485121 (Version 1)
Quarter: 2020Q4

REPORT INFORMATION
  Report Type: Spontaneous
  Country: US (occurrence: US)
  Receive Date: 20201109
  Receipt Date: 20201109
  Transmission Date: 20210114
  Serious: Yes (Disabling)
  Sender: FDA-Public Use
  Company Number: None

PATIENT
  Age: 55 Year
  Sex: Female
  Weight: 101.7 kg

DRUGS (1)
  1. CINQAIR [Suspect]
     Active Substance: RESLIZUMAB
     Indication: ASTHMA
     Dosage: ?          OTHER FREQUENCY:MONTHLY INFUSION;?
     Route: 042
     Dates: start: 20181001

REACTIONS (10)
  - Hypotension [None]
  - Anaphylactic reaction [None]
  - Headache [None]
  - Asthenia [None]
  - Anal incontinence [None]
  - Feeling abnormal [None]
  - Diplopia [None]
  - Vision blurred [None]
  - Syncope [None]
  - Cerebrovascular accident [None]

NARRATIVE: CASE EVENT DATE: 20201106
